FAERS Safety Report 11499609 (Version 1)
Quarter: 2015Q3

REPORT INFORMATION
  Report Type: Spontaneous
  Country: US (occurrence: None)
  Receive Date: 20150911
  Receipt Date: 20150911
  Transmission Date: 20151125
  Serious: Yes (Hospitalization)
  Sender: FDA-Public Use
  Company Number: None

PATIENT
  Age: 3 Year
  Sex: Female
  Weight: 19.8 kg

DRUGS (6)
  1. METHOTREXATE [Suspect]
     Active Substance: METHOTREXATE
     Dates: end: 20140929
  2. ONCASPAR [Suspect]
     Active Substance: PEGASPARGASE
     Dosage: 1925 IU
     Dates: end: 20140901
  3. VINCRISTINE SULFATE. [Concomitant]
     Active Substance: VINCRISTINE SULFATE
     Dates: end: 20140919
  4. CYTARABINE. [Suspect]
     Active Substance: CYTARABINE
     Dates: end: 20140828
  5. DAUNORUBICIN [Suspect]
     Active Substance: DAUNORUBICIN
     Dates: end: 20140919
  6. DEXAMETHASONE. [Suspect]
     Active Substance: DEXAMETHASONE
     Dates: end: 20140911

REACTIONS (4)
  - Fungaemia [None]
  - Hypertension [None]
  - Hypotension [None]
  - Oedema [None]

NARRATIVE: CASE EVENT DATE: 20140829
